FAERS Safety Report 7933336-8 (Version None)
Quarter: 2011Q4

REPORT INFORMATION
  Report Type: 
  Country: None (occurrence: None)
  Receive Date: 20111122
  Receipt Date: 20111115
  Transmission Date: 20120403
  Serious: Yes (Other)
  Sender: FDA-Public Use
  Company Number: US-SANOFI-AVENTIS-2011SA075435

PATIENT
  Age: 78 Year
  Sex: Female

DRUGS (1)
  1. LOVENOX [Suspect]
     Dates: start: 20090101

REACTIONS (7)
  - OSTEOPENIA [None]
  - FRACTURE [None]
  - SKIN FISSURES [None]
  - OSTEOPOROSIS [None]
  - MUSCLE ATROPHY [None]
  - MYALGIA [None]
  - SKIN ATROPHY [None]
